FAERS Safety Report 13078538 (Version 1)
Quarter: 2017Q1

REPORT INFORMATION
  Report Type: Spontaneous
  Country: US (occurrence: US)
  Receive Date: 20170102
  Receipt Date: 20170102
  Transmission Date: 20170428
  Serious: No
  Sender: FDA-Public Use
  Company Number: US-009507513-1612USA004688

PATIENT
  Sex: Male

DRUGS (1)
  1. JANUMET XR [Suspect]
     Active Substance: METFORMIN HYDROCHLORIDE\SITAGLIPTIN PHOSPHATE
     Dosage: 50 MG SITAGLIPTIN 1000 MG METFORMIN EXTENDED RELEASE (1 TABLET), TWICE DAILY
     Route: 048
     Dates: end: 20161206

REACTIONS (7)
  - Adverse event [Unknown]
  - Arthralgia [Unknown]
  - Fatigue [Unknown]
  - Dyspnoea [Unknown]
  - Dyspepsia [Unknown]
  - Insomnia [Unknown]
  - Flatulence [Unknown]
